FAERS Safety Report 15648520 (Version 1)
Quarter: 2018Q4

REPORT INFORMATION
  Report Type: Spontaneous
  Country: US (occurrence: US)
  Receive Date: 20181122
  Receipt Date: 20181122
  Transmission Date: 20190205
  Serious: No
  Sender: FDA-Public Use
  Company Number: US-TEVA-2018-US-970083

PATIENT
  Age: 70 Year
  Sex: Female

DRUGS (3)
  1. AJOVY [Suspect]
     Active Substance: FREMANEZUMAB-VFRM
     Indication: HEMIPLEGIC MIGRAINE
     Dates: start: 20181022
  2. BOTOX [Concomitant]
     Active Substance: ONABOTULINUMTOXINA
     Indication: HEMIPLEGIC MIGRAINE
  3. TOPIRAMATE. [Concomitant]
     Active Substance: TOPIRAMATE

REACTIONS (4)
  - Photopsia [Recovered/Resolved]
  - Migraine [Recovered/Resolved]
  - Nausea [Recovered/Resolved]
  - Eye disorder [Recovered/Resolved]

NARRATIVE: CASE EVENT DATE: 20181022
